FAERS Safety Report 8128089-7 (Version None)
Quarter: 2012Q1

REPORT INFORMATION
  Report Type: 
  Country: None (occurrence: None)
  Receive Date: 20120210
  Receipt Date: 20120124
  Transmission Date: 20120608
  Serious: Yes (Hospitalization)
  Sender: FDA-Public Use
  Company Number: SE-PFIZER INC-K201000114

PATIENT
  Sex: Female

DRUGS (8)
  1. ASPIRIN [Concomitant]
     Dosage: 75 MG, 1X/DAY
     Dates: end: 20090917
  2. ALTACE [Suspect]
     Indication: MYOCARDIAL ISCHAEMIA
     Dosage: 1.2 MG, 1X/DAY
     Route: 048
     Dates: end: 20090917
  3. PLAVIX [Concomitant]
     Dosage: 75 MG, 1X/DAY
     Dates: start: 20090909, end: 20090917
  4. METOPROLOL TARTRATE [Concomitant]
  5. RISPERDAL [Concomitant]
  6. SIMVASTATIN [Concomitant]
  7. PROPAVAN [Concomitant]
  8. SPIRONOLACTONE [Suspect]
     Dosage: UNK
     Dates: end: 20090917

REACTIONS (5)
  - CEREBRAL HAEMORRHAGE [None]
  - HYPOTENSION [None]
  - FALL [None]
  - HEAD INJURY [None]
  - BRAIN CONTUSION [None]
